FAERS Safety Report 6236937-0 (Version None)
Quarter: 2009Q2

REPORT INFORMATION
  Report Type: 
  Country: None (occurrence: None)
  Receive Date: 20090619
  Receipt Date: 20090415
  Transmission Date: 20091009
  Serious: No
  Sender: FDA-Public Use
  Company Number: US-ASTRAZENECA-2009UW03989

PATIENT
  Age: 77 Year
  Sex: Male
  Weight: 81.6 kg

DRUGS (3)
  1. SYMBICORT [Suspect]
     Indication: ASTHMA
     Dosage: 2 PUFFS TWICE A DAY
     Route: 055
     Dates: start: 20080901
  2. VITAMIN [Concomitant]
     Route: 048
  3. EYE DROPS [Concomitant]

REACTIONS (2)
  - DRY EYE [None]
  - ORAL FUNGAL INFECTION [None]
